FAERS Safety Report 5451503-2 (Version None)
Quarter: 2007Q3

REPORT INFORMATION
  Report Type: 
  Country: None (occurrence: None)
  Receive Date: 20070913
  Receipt Date: 20070904
  Transmission Date: 20080115
  Serious: Yes (Hospitalization, Disabling)
  Sender: FDA-Public Use
  Company Number: SE-AMGEN-UK217272

PATIENT
  Sex: Male

DRUGS (11)
  1. ARANESP [Suspect]
     Indication: MYELODYSPLASTIC SYNDROME
     Dates: start: 20070108, end: 20070205
  2. LANACRIST [Concomitant]
     Route: 048
  3. FURIX [Concomitant]
     Route: 048
  4. TROMBYL [Concomitant]
     Route: 048
  5. TRIATEC [Concomitant]
     Route: 048
  6. TERAZOSIN HCL [Concomitant]
     Route: 048
  7. CYANOCOBALAMIN [Concomitant]
     Route: 048
  8. FOLIC ACID [Concomitant]
     Route: 048
  9. PYRIDOXINE HCL [Concomitant]
     Route: 048
  10. METOPROLOL TARTRATE [Concomitant]
  11. TEGRETOL [Concomitant]

REACTIONS (3)
  - CEREBRAL INFARCTION [None]
  - HYPOAESTHESIA [None]
  - MUSCULAR WEAKNESS [None]
